FAERS Safety Report 17839065 (Version 1)
Quarter: 2020Q2

REPORT INFORMATION
  Report Type: Spontaneous
  Country: US (occurrence: US)
  Receive Date: 20200528
  Receipt Date: 20200528
  Transmission Date: 20200714
  Serious: Yes (Other)
  Sender: FDA-Public Use
  Company Number: None

PATIENT
  Age: 23 Year
  Sex: Female
  Weight: 56.2 kg

DRUGS (9)
  1. FLUCONAZOLE. [Concomitant]
     Active Substance: FLUCONAZOLE
  2. OXYCODONE [Concomitant]
     Active Substance: OXYCODONE
  3. TPN [Concomitant]
     Active Substance: AMINO ACIDS\DEXTROSE\ELECTROLYTES NOS\SOYBEAN OIL
  4. ONDANSETRON [Concomitant]
     Active Substance: ONDANSETRON
  5. AZATHIOPRINE. [Concomitant]
     Active Substance: AZATHIOPRINE
  6. MOXIFLOXACIN. [Concomitant]
     Active Substance: MOXIFLOXACIN
  7. YASMIN [Concomitant]
     Active Substance: DROSPIRENONE\ETHINYL ESTRADIOL
  8. HUMIRA [Suspect]
     Active Substance: ADALIMUMAB
     Indication: CROHN^S DISEASE
     Dosage: ?          OTHER FREQUENCY:EVERY 14 DAYS;?
     Route: 058
     Dates: start: 20200409
  9. BUPROPION. [Concomitant]
     Active Substance: BUPROPION

REACTIONS (3)
  - Weight increased [None]
  - Swelling face [None]
  - Eye swelling [None]

NARRATIVE: CASE EVENT DATE: 20200528
